FAERS Safety Report 24138835 (Version 3)
Quarter: 2024Q3

REPORT INFORMATION
  Report Type: Spontaneous
  Country: CA (occurrence: CA)
  Receive Date: 20240725
  Receipt Date: 20240823
  Transmission Date: 20241017
  Serious: Yes (Death, Life-Threatening, Hospitalization, Disabling, Congenital Anomaly, Other)
  Sender: Haleon PLC
  Company Number: CA-HALEON-2187999

PATIENT
  Age: 40 Year
  Sex: Female

DRUGS (451)
  1. ACETAMINOPHEN [Suspect]
     Active Substance: ACETAMINOPHEN
     Indication: Rheumatoid arthritis
     Route: 065
  2. ACETAMINOPHEN [Suspect]
     Active Substance: ACETAMINOPHEN
     Route: 065
  3. ACETAMINOPHEN [Suspect]
     Active Substance: ACETAMINOPHEN
     Route: 065
  4. ACETAMINOPHEN [Suspect]
     Active Substance: ACETAMINOPHEN
     Route: 065
  5. ACETAMINOPHEN [Suspect]
     Active Substance: ACETAMINOPHEN
     Route: 065
  6. ACETAMINOPHEN [Suspect]
     Active Substance: ACETAMINOPHEN
     Indication: Product used for unknown indication
  7. PREPARATION H SUPPOSITORY [Suspect]
     Active Substance: COCOA BUTTER\PHENYLEPHRINE HYDROCHLORIDE
     Indication: Rheumatoid arthritis
     Route: 065
  8. DICLOFENAC [Suspect]
     Active Substance: DICLOFENAC
     Indication: Product used for unknown indication
  9. PANADOL [Suspect]
     Active Substance: ACETAMINOPHEN
     Indication: Rheumatoid arthritis
     Route: 065
  10. PANADOL [Suspect]
     Active Substance: ACETAMINOPHEN
     Route: 065
  11. PANADOL [Suspect]
     Active Substance: ACETAMINOPHEN
     Route: 065
  12. PANADOL [Suspect]
     Active Substance: ACETAMINOPHEN
     Route: 065
  13. PANADOL [Suspect]
     Active Substance: ACETAMINOPHEN
     Route: 065
  14. PANADOL [Suspect]
     Active Substance: ACETAMINOPHEN
     Route: 065
  15. PANADOL [Suspect]
     Active Substance: ACETAMINOPHEN
     Route: 065
  16. DICLOFENAC DIETHYLAMINE [Suspect]
     Active Substance: DICLOFENAC DIETHYLAMINE
     Indication: Product used for unknown indication
     Route: 058
  17. DICLOFENAC DIETHYLAMINE [Suspect]
     Active Substance: DICLOFENAC DIETHYLAMINE
     Route: 065
  18. DICLOFENAC DIETHYLAMINE [Suspect]
     Active Substance: DICLOFENAC DIETHYLAMINE
     Route: 065
  19. DICLOFENAC DIETHYLAMINE [Suspect]
     Active Substance: DICLOFENAC DIETHYLAMINE
     Route: 065
  20. HYDROCORTISONE [Suspect]
     Active Substance: HYDROCORTISONE\HYDROCORTISONE ACETATE
     Indication: Product used for unknown indication
     Route: 065
  21. ADALIMUMAB [Suspect]
     Active Substance: ADALIMUMAB
     Indication: Rheumatoid arthritis
     Route: 058
  22. ADALIMUMAB [Suspect]
     Active Substance: ADALIMUMAB
     Route: 058
  23. AIMOVIG [Suspect]
     Active Substance: ERENUMAB-AOOE
     Indication: Product used for unknown indication
     Route: 065
  24. AIMOVIG [Suspect]
     Active Substance: ERENUMAB-AOOE
     Route: 065
  25. INFLIXIMAB [Suspect]
     Active Substance: INFLIXIMAB
     Indication: Product used for unknown indication
     Route: 042
  26. INFLIXIMAB [Suspect]
     Active Substance: INFLIXIMAB
     Route: 042
  27. INFLIXIMAB [Suspect]
     Active Substance: INFLIXIMAB
     Route: 042
  28. INFLIXIMAB [Suspect]
     Active Substance: INFLIXIMAB
     Route: 042
  29. INFLIXIMAB [Suspect]
     Active Substance: INFLIXIMAB
     Route: 042
  30. CANDESARTAN [Suspect]
     Active Substance: CANDESARTAN
     Indication: Migraine
     Route: 048
  31. COSENTYX [Concomitant]
     Active Substance: SECUKINUMAB
     Indication: Product used for unknown indication
     Route: 065
  32. ERELZI [Suspect]
     Active Substance: ETANERCEPT-SZZS
     Indication: Rheumatoid arthritis
     Route: 058
  33. ERELZI [Suspect]
     Active Substance: ETANERCEPT-SZZS
     Route: 058
  34. ERELZI [Suspect]
     Active Substance: ETANERCEPT-SZZS
     Route: 065
  35. ERELZI [Suspect]
     Active Substance: ETANERCEPT-SZZS
     Route: 065
  36. LEFLUNOMIDE [Suspect]
     Active Substance: LEFLUNOMIDE
     Indication: Rheumatoid arthritis
     Route: 048
  37. LEFLUNOMIDE [Suspect]
     Active Substance: LEFLUNOMIDE
     Route: 065
  38. LEFLUNOMIDE [Suspect]
     Active Substance: LEFLUNOMIDE
     Route: 065
  39. LEFLUNOMIDE [Suspect]
     Active Substance: LEFLUNOMIDE
     Route: 065
  40. LEFLUNOMIDE [Suspect]
     Active Substance: LEFLUNOMIDE
     Route: 048
  41. LEFLUNOMIDE [Suspect]
     Active Substance: LEFLUNOMIDE
     Route: 065
  42. OXYCODONE [Suspect]
     Active Substance: OXYCODONE
     Indication: Product used for unknown indication
     Route: 065
  43. RITUXIMAB [Suspect]
     Active Substance: RITUXIMAB
     Indication: Rheumatoid arthritis
     Route: 058
  44. RITUXIMAB [Suspect]
     Active Substance: RITUXIMAB
     Route: 042
  45. RITUXIMAB [Suspect]
     Active Substance: RITUXIMAB
     Route: 042
  46. RITUXIMAB [Suspect]
     Active Substance: RITUXIMAB
     Route: 042
  47. RITUXIMAB [Suspect]
     Active Substance: RITUXIMAB
     Route: 065
  48. RITUXIMAB [Suspect]
     Active Substance: RITUXIMAB
     Route: 065
  49. RITUXIMAB [Suspect]
     Active Substance: RITUXIMAB
     Route: 042
  50. RITUXIMAB [Suspect]
     Active Substance: RITUXIMAB
     Route: 043
  51. RITUXIMAB [Suspect]
     Active Substance: RITUXIMAB
     Route: 043
  52. RITUXIMAB [Suspect]
     Active Substance: RITUXIMAB
     Route: 058
  53. RITUXIMAB [Suspect]
     Active Substance: RITUXIMAB
     Route: 065
  54. RITUXIMAB [Suspect]
     Active Substance: RITUXIMAB
     Route: 042
  55. RITUXIMAB [Suspect]
     Active Substance: RITUXIMAB
     Route: 042
  56. RITUXIMAB [Suspect]
     Active Substance: RITUXIMAB
     Route: 065
  57. RITUXIMAB [Suspect]
     Active Substance: RITUXIMAB
     Route: 016
  58. RITUXIMAB [Suspect]
     Active Substance: RITUXIMAB
     Route: 016
  59. RITUXIMAB [Suspect]
     Active Substance: RITUXIMAB
     Route: 016
  60. RITUXIMAB [Suspect]
     Active Substance: RITUXIMAB
     Route: 065
  61. RITUXIMAB [Suspect]
     Active Substance: RITUXIMAB
     Route: 065
  62. RITUXIMAB [Suspect]
     Active Substance: RITUXIMAB
     Route: 042
  63. METHOTREXATE [Suspect]
     Active Substance: METHOTREXATE
     Indication: Product used for unknown indication
     Route: 048
  64. METHOTREXATE [Suspect]
     Active Substance: METHOTREXATE
     Route: 048
  65. METHOTREXATE [Suspect]
     Active Substance: METHOTREXATE
     Route: 065
  66. METHOTREXATE [Suspect]
     Active Substance: METHOTREXATE
     Route: 065
  67. METHOTREXATE [Suspect]
     Active Substance: METHOTREXATE
     Route: 065
  68. METHOTREXATE [Suspect]
     Active Substance: METHOTREXATE
     Route: 058
  69. METHOTREXATE [Suspect]
     Active Substance: METHOTREXATE
     Route: 013
  70. METHOTREXATE [Suspect]
     Active Substance: METHOTREXATE
     Route: 048
  71. METHOTREXATE [Suspect]
     Active Substance: METHOTREXATE
     Route: 048
  72. METHOTREXATE [Suspect]
     Active Substance: METHOTREXATE
     Route: 048
  73. METHOTREXATE [Suspect]
     Active Substance: METHOTREXATE
     Route: 048
  74. METHOTREXATE [Suspect]
     Active Substance: METHOTREXATE
     Route: 048
  75. METHOTREXATE [Suspect]
     Active Substance: METHOTREXATE
     Route: 048
  76. METHOTREXATE [Suspect]
     Active Substance: METHOTREXATE
     Route: 013
  77. METHOTREXATE [Suspect]
     Active Substance: METHOTREXATE
     Route: 048
  78. METHOTREXATE [Suspect]
     Active Substance: METHOTREXATE
     Route: 048
  79. METHOTREXATE [Suspect]
     Active Substance: METHOTREXATE
     Route: 058
  80. METHOTREXATE [Suspect]
     Active Substance: METHOTREXATE
     Route: 048
  81. METHOTREXATE [Suspect]
     Active Substance: METHOTREXATE
     Route: 048
  82. METHOTREXATE [Suspect]
     Active Substance: METHOTREXATE
     Route: 065
  83. METHOTREXATE [Suspect]
     Active Substance: METHOTREXATE
     Route: 016
  84. METHOTREXATE [Suspect]
     Active Substance: METHOTREXATE
     Route: 048
  85. RAMIPRIL [Suspect]
     Active Substance: RAMIPRIL
     Indication: Rheumatoid arthritis
     Route: 042
  86. RAMIPRIL [Suspect]
     Active Substance: RAMIPRIL
     Route: 065
  87. RAMIPRIL [Suspect]
     Active Substance: RAMIPRIL
     Route: 016
  88. TOPIRAMATE [Suspect]
     Active Substance: TOPIRAMATE
     Indication: Product used for unknown indication
     Route: 065
  89. TOPIRAMATE [Suspect]
     Active Substance: TOPIRAMATE
     Route: 065
  90. TOPIRAMATE [Suspect]
     Active Substance: TOPIRAMATE
     Route: 065
  91. TOPIRAMATE [Suspect]
     Active Substance: TOPIRAMATE
     Route: 065
  92. TRAMADOL HYDROCHLORIDE [Suspect]
     Active Substance: TRAMADOL HYDROCHLORIDE
     Indication: Rheumatoid arthritis
     Route: 065
  93. TRAMADOL HYDROCHLORIDE [Suspect]
     Active Substance: TRAMADOL HYDROCHLORIDE
     Route: 014
  94. ALENDRONIC ACID [Suspect]
     Active Substance: ALENDRONIC ACID
     Indication: Rheumatoid arthritis
     Route: 065
  95. ALENDRONIC ACID [Suspect]
     Active Substance: ALENDRONIC ACID
     Route: 065
  96. ALENDRONIC ACID [Suspect]
     Active Substance: ALENDRONIC ACID
     Route: 065
  97. ALENDRONIC ACID [Suspect]
     Active Substance: ALENDRONIC ACID
     Route: 016
  98. ALENDRONIC ACID [Suspect]
     Active Substance: ALENDRONIC ACID
     Route: 065
  99. ALENDRONIC ACID [Suspect]
     Active Substance: ALENDRONIC ACID
     Route: 065
  100. ALENDRONIC ACID [Suspect]
     Active Substance: ALENDRONIC ACID
     Route: 065
  101. ALENDRONIC ACID [Suspect]
     Active Substance: ALENDRONIC ACID
     Route: 065
  102. ALENDRONIC ACID [Suspect]
     Active Substance: ALENDRONIC ACID
     Route: 048
  103. ALENDRONIC ACID [Suspect]
     Active Substance: ALENDRONIC ACID
     Route: 048
  104. ALENDRONIC ACID [Suspect]
     Active Substance: ALENDRONIC ACID
     Route: 048
  105. ATOMOXETINE [Suspect]
     Active Substance: ATOMOXETINE HYDROCHLORIDE
     Indication: Migraine
     Route: 065
  106. PHENYLEPHRINE HYDROCHLORIDE [Suspect]
     Active Substance: PHENYLEPHRINE HYDROCHLORIDE
     Indication: Product used for unknown indication
     Route: 065
  107. TOCILIZUMAB [Suspect]
     Active Substance: TOCILIZUMAB
     Indication: Rheumatoid arthritis
     Route: 058
  108. TOCILIZUMAB [Suspect]
     Active Substance: TOCILIZUMAB
     Indication: Abdominal discomfort
     Route: 042
  109. TOCILIZUMAB [Suspect]
     Active Substance: TOCILIZUMAB
     Route: 042
  110. TOCILIZUMAB [Suspect]
     Active Substance: TOCILIZUMAB
     Route: 065
  111. TOCILIZUMAB [Suspect]
     Active Substance: TOCILIZUMAB
     Route: 048
  112. TOCILIZUMAB [Suspect]
     Active Substance: TOCILIZUMAB
     Route: 065
  113. TOCILIZUMAB [Suspect]
     Active Substance: TOCILIZUMAB
     Route: 065
  114. TOCILIZUMAB [Suspect]
     Active Substance: TOCILIZUMAB
     Route: 058
  115. TOCILIZUMAB [Suspect]
     Active Substance: TOCILIZUMAB
     Route: 065
  116. TOCILIZUMAB [Suspect]
     Active Substance: TOCILIZUMAB
     Route: 016
  117. TOCILIZUMAB [Suspect]
     Active Substance: TOCILIZUMAB
     Route: 058
  118. TOCILIZUMAB [Suspect]
     Active Substance: TOCILIZUMAB
     Route: 058
  119. TOCILIZUMAB [Suspect]
     Active Substance: TOCILIZUMAB
     Route: 058
  120. TOCILIZUMAB [Suspect]
     Active Substance: TOCILIZUMAB
     Route: 058
  121. TOCILIZUMAB [Suspect]
     Active Substance: TOCILIZUMAB
     Route: 042
  122. TOCILIZUMAB [Suspect]
     Active Substance: TOCILIZUMAB
     Route: 065
  123. TOCILIZUMAB [Suspect]
     Active Substance: TOCILIZUMAB
     Route: 042
  124. TOCILIZUMAB [Suspect]
     Active Substance: TOCILIZUMAB
     Route: 042
  125. TOCILIZUMAB [Suspect]
     Active Substance: TOCILIZUMAB
     Route: 058
  126. LEFLUNOMIDE [Suspect]
     Active Substance: LEFLUNOMIDE
     Indication: Rheumatoid arthritis
     Route: 048
  127. LEFLUNOMIDE [Suspect]
     Active Substance: LEFLUNOMIDE
     Route: 065
  128. LEFLUNOMIDE [Suspect]
     Active Substance: LEFLUNOMIDE
     Route: 065
  129. PREDNISONE [Suspect]
     Active Substance: PREDNISONE
     Indication: Product used for unknown indication
     Route: 048
  130. PREDNISONE [Suspect]
     Active Substance: PREDNISONE
     Route: 065
  131. PREDNISONE [Suspect]
     Active Substance: PREDNISONE
     Route: 065
  132. PREDNISONE [Suspect]
     Active Substance: PREDNISONE
     Route: 048
  133. PREDNISONE [Suspect]
     Active Substance: PREDNISONE
     Route: 065
  134. PREDNISONE [Suspect]
     Active Substance: PREDNISONE
     Route: 065
  135. PREDNISONE [Suspect]
     Active Substance: PREDNISONE
     Route: 048
  136. PREDNISONE [Suspect]
     Active Substance: PREDNISONE
     Route: 048
  137. PREDNISONE [Suspect]
     Active Substance: PREDNISONE
     Route: 048
  138. DESOXIMETASONE [Suspect]
     Active Substance: DESOXIMETASONE
     Indication: Rheumatoid arthritis
     Route: 065
  139. DESOXIMETASONE [Suspect]
     Active Substance: DESOXIMETASONE
     Route: 065
  140. DESOXIMETASONE [Suspect]
     Active Substance: DESOXIMETASONE
     Route: 048
  141. DESOXIMETASONE [Suspect]
     Active Substance: DESOXIMETASONE
     Route: 065
  142. DESOXIMETASONE [Suspect]
     Active Substance: DESOXIMETASONE
     Route: 058
  143. DESOXIMETASONE [Suspect]
     Active Substance: DESOXIMETASONE
     Route: 065
  144. DESOXIMETASONE [Suspect]
     Active Substance: DESOXIMETASONE
     Route: 065
  145. DESOXIMETASONE [Suspect]
     Active Substance: DESOXIMETASONE
     Route: 065
  146. DESOXIMETASONE [Suspect]
     Active Substance: DESOXIMETASONE
     Route: 065
  147. DESOXIMETASONE [Suspect]
     Active Substance: DESOXIMETASONE
     Route: 048
  148. DESOXIMETASONE [Suspect]
     Active Substance: DESOXIMETASONE
     Route: 048
  149. DESOXIMETASONE [Suspect]
     Active Substance: DESOXIMETASONE
     Route: 058
  150. DESOXIMETASONE [Suspect]
     Active Substance: DESOXIMETASONE
     Route: 048
  151. DESOXIMETASONE [Suspect]
     Active Substance: DESOXIMETASONE
     Route: 048
  152. DESOXIMETASONE [Suspect]
     Active Substance: DESOXIMETASONE
     Route: 065
  153. DESOXIMETASONE [Suspect]
     Active Substance: DESOXIMETASONE
     Route: 048
  154. DESOXIMETASONE [Suspect]
     Active Substance: DESOXIMETASONE
     Route: 048
  155. DESOXIMETASONE [Suspect]
     Active Substance: DESOXIMETASONE
     Route: 065
  156. DESOXIMETASONE [Suspect]
     Active Substance: DESOXIMETASONE
     Route: 048
  157. DESOXIMETASONE [Suspect]
     Active Substance: DESOXIMETASONE
     Route: 065
  158. DESOXIMETASONE [Suspect]
     Active Substance: DESOXIMETASONE
     Route: 065
  159. APREMILAST [Suspect]
     Active Substance: APREMILAST
     Indication: Rheumatoid arthritis
     Route: 065
  160. APREMILAST [Suspect]
     Active Substance: APREMILAST
     Route: 065
  161. ARAVA [Suspect]
     Active Substance: LEFLUNOMIDE
     Indication: Rheumatoid arthritis
     Route: 048
  162. ARAVA [Suspect]
     Active Substance: LEFLUNOMIDE
     Route: 065
  163. ARAVA [Suspect]
     Active Substance: LEFLUNOMIDE
     Route: 048
  164. ARAVA [Suspect]
     Active Substance: LEFLUNOMIDE
     Route: 065
  165. ARAVA [Suspect]
     Active Substance: LEFLUNOMIDE
     Route: 065
  166. ARAVA [Suspect]
     Active Substance: LEFLUNOMIDE
     Route: 065
  167. CIMZIA [Suspect]
     Active Substance: CERTOLIZUMAB PEGOL
     Indication: Rheumatoid arthritis
     Route: 058
  168. CIMZIA [Suspect]
     Active Substance: CERTOLIZUMAB PEGOL
     Indication: Psoriasis
     Route: 065
  169. CIMZIA [Suspect]
     Active Substance: CERTOLIZUMAB PEGOL
     Route: 058
  170. CIMZIA [Suspect]
     Active Substance: CERTOLIZUMAB PEGOL
     Route: 058
  171. CIMZIA [Suspect]
     Active Substance: CERTOLIZUMAB PEGOL
     Route: 065
  172. CIMZIA [Suspect]
     Active Substance: CERTOLIZUMAB PEGOL
     Route: 058
  173. CIMZIA [Suspect]
     Active Substance: CERTOLIZUMAB PEGOL
     Route: 058
  174. CIMZIA [Suspect]
     Active Substance: CERTOLIZUMAB PEGOL
     Route: 058
  175. CORTISONE ACETATE [Suspect]
     Active Substance: CORTISONE ACETATE
     Indication: Rheumatoid arthritis
     Route: 065
  176. CORTISONE ACETATE [Suspect]
     Active Substance: CORTISONE ACETATE
     Route: 048
  177. CORTISONE ACETATE [Suspect]
     Active Substance: CORTISONE ACETATE
     Route: 065
  178. ENBREL [Suspect]
     Active Substance: ETANERCEPT
     Indication: Rheumatoid arthritis
     Route: 058
  179. ENBREL [Suspect]
     Active Substance: ETANERCEPT
     Route: 058
  180. ENBREL [Suspect]
     Active Substance: ETANERCEPT
     Route: 065
  181. ENBREL [Suspect]
     Active Substance: ETANERCEPT
     Route: 058
  182. ENBREL [Suspect]
     Active Substance: ETANERCEPT
     Route: 065
  183. ENBREL [Suspect]
     Active Substance: ETANERCEPT
     Route: 065
  184. ENBREL [Suspect]
     Active Substance: ETANERCEPT
     Route: 065
  185. ENBREL [Suspect]
     Active Substance: ETANERCEPT
     Route: 058
  186. FLUMETHASONE [Suspect]
     Active Substance: FLUMETHASONE
     Indication: Product used for unknown indication
     Route: 065
  187. FLUMETHASONE PIVALATE [Suspect]
     Active Substance: FLUMETHASONE PIVALATE
     Indication: Product used for unknown indication
     Route: 058
  188. FLUMETHASONE PIVALATE [Suspect]
     Active Substance: FLUMETHASONE PIVALATE
     Route: 065
  189. FOSAMAX [Suspect]
     Active Substance: ALENDRONATE SODIUM
     Indication: Rheumatoid arthritis
     Route: 016
  190. FOSAMAX [Suspect]
     Active Substance: ALENDRONATE SODIUM
     Route: 065
  191. FOSAMAX [Suspect]
     Active Substance: ALENDRONATE SODIUM
     Route: 048
  192. FOSAMAX [Suspect]
     Active Substance: ALENDRONATE SODIUM
     Route: 065
  193. FOSAMAX [Suspect]
     Active Substance: ALENDRONATE SODIUM
     Route: 058
  194. GOLD [Suspect]
     Active Substance: GOLD
     Indication: Product used for unknown indication
     Route: 065
  195. GOLD SODIUM THIOMALATE [Suspect]
     Active Substance: GOLD SODIUM THIOMALATE
     Indication: Product used for unknown indication
     Route: 065
  196. GOLIMUMAB [Suspect]
     Active Substance: GOLIMUMAB
     Indication: Rheumatoid arthritis
     Route: 065
  197. GOLIMUMAB [Suspect]
     Active Substance: GOLIMUMAB
     Route: 058
  198. HUMIRA [Suspect]
     Active Substance: ADALIMUMAB
     Indication: Rheumatoid arthritis
     Route: 065
  199. HUMIRA [Suspect]
     Active Substance: ADALIMUMAB
     Route: 058
  200. HUMIRA [Suspect]
     Active Substance: ADALIMUMAB
     Route: 058
  201. HUMIRA [Suspect]
     Active Substance: ADALIMUMAB
     Route: 058
  202. HUMIRA [Suspect]
     Active Substance: ADALIMUMAB
     Route: 065
  203. HUMIRA [Suspect]
     Active Substance: ADALIMUMAB
     Route: 058
  204. HYDROXYCHLOROQUINE [Suspect]
     Active Substance: HYDROXYCHLOROQUINE
     Indication: Rheumatoid arthritis
     Route: 048
  205. HYDROXYCHLOROQUINE [Suspect]
     Active Substance: HYDROXYCHLOROQUINE
     Route: 065
  206. HYDROXYCHLOROQUINE [Suspect]
     Active Substance: HYDROXYCHLOROQUINE
     Route: 065
  207. HYDROXYCHLOROQUINE [Suspect]
     Active Substance: HYDROXYCHLOROQUINE
     Route: 065
  208. HYDROXYCHLOROQUINE [Suspect]
     Active Substance: HYDROXYCHLOROQUINE
     Route: 048
  209. HYDROXYCHLOROQUINE [Suspect]
     Active Substance: HYDROXYCHLOROQUINE
     Route: 065
  210. HYDROXYCHLOROQUINE [Suspect]
     Active Substance: HYDROXYCHLOROQUINE
     Route: 048
  211. HYDROXYCHLOROQUINE [Suspect]
     Active Substance: HYDROXYCHLOROQUINE
     Route: 048
  212. HYDROXYCHLOROQUINE [Suspect]
     Active Substance: HYDROXYCHLOROQUINE
     Route: 058
  213. HYDROXYCHLOROQUINE [Suspect]
     Active Substance: HYDROXYCHLOROQUINE
     Route: 065
  214. HYDROXYCHLOROQUINE [Suspect]
     Active Substance: HYDROXYCHLOROQUINE
     Route: 058
  215. HYDROXYCHLOROQUINE [Suspect]
     Active Substance: HYDROXYCHLOROQUINE
     Route: 048
  216. HYDROXYCHLOROQUINE [Suspect]
     Active Substance: HYDROXYCHLOROQUINE
     Route: 058
  217. HYDROXYCHLOROQUINE [Suspect]
     Active Substance: HYDROXYCHLOROQUINE
     Route: 016
  218. HYDROXYCHLOROQUINE [Suspect]
     Active Substance: HYDROXYCHLOROQUINE
     Route: 065
  219. HYDROXYCHLOROQUINE [Suspect]
     Active Substance: HYDROXYCHLOROQUINE
     Route: 048
  220. HYDROXYCHLOROQUINE [Suspect]
     Active Substance: HYDROXYCHLOROQUINE
     Route: 065
  221. HYDROXYCHLOROQUINE [Suspect]
     Active Substance: HYDROXYCHLOROQUINE
     Route: 058
  222. HYDROXYCHLOROQUINE [Suspect]
     Active Substance: HYDROXYCHLOROQUINE
     Route: 048
  223. NAPROXEN [Suspect]
     Active Substance: NAPROXEN
     Indication: Product used for unknown indication
     Route: 065
  224. NAPROXEN SODIUM [Suspect]
     Active Substance: NAPROXEN\NAPROXEN SODIUM
     Indication: Product used for unknown indication
     Route: 065
  225. NUCALA [Suspect]
     Active Substance: MEPOLIZUMAB
     Indication: Product used for unknown indication
     Route: 065
  226. ORENCIA [Suspect]
     Active Substance: ABATACEPT
     Indication: Rheumatoid arthritis
     Route: 058
  227. ORENCIA [Suspect]
     Active Substance: ABATACEPT
     Route: 065
  228. ORENCIA [Suspect]
     Active Substance: ABATACEPT
     Route: 065
  229. ORENCIA [Suspect]
     Active Substance: ABATACEPT
     Route: 042
  230. ORENCIA [Suspect]
     Active Substance: ABATACEPT
     Route: 042
  231. ORENCIA [Suspect]
     Active Substance: ABATACEPT
     Route: 065
  232. ORENCIA [Suspect]
     Active Substance: ABATACEPT
     Route: 042
  233. ORENCIA [Suspect]
     Active Substance: ABATACEPT
     Route: 065
  234. ORENCIA [Suspect]
     Active Substance: ABATACEPT
     Route: 042
  235. ORENCIA [Suspect]
     Active Substance: ABATACEPT
     Route: 065
  236. ORENCIA [Suspect]
     Active Substance: ABATACEPT
     Route: 065
  237. ORENCIA [Suspect]
     Active Substance: ABATACEPT
     Route: 065
  238. OXYCODONE TEREPHTHALATE [Suspect]
     Active Substance: OXYCODONE TEREPHTHALATE
     Indication: Product used for unknown indication
     Route: 065
  239. PHTHALYLSULFATHIAZOLE [Suspect]
     Active Substance: PHTHALYLSULFATHIAZOLE
     Indication: Rheumatoid arthritis
     Route: 065
  240. PHTHALYLSULFATHIAZOLE [Suspect]
     Active Substance: PHTHALYLSULFATHIAZOLE
     Route: 065
  241. PHTHALYLSULFATHIAZOLE [Suspect]
     Active Substance: PHTHALYLSULFATHIAZOLE
     Route: 048
  242. PHTHALYLSULFATHIAZOLE [Suspect]
     Active Substance: PHTHALYLSULFATHIAZOLE
     Route: 065
  243. PHTHALYLSULFATHIAZOLE [Suspect]
     Active Substance: PHTHALYLSULFATHIAZOLE
     Route: 042
  244. PHTHALYLSULFATHIAZOLE [Suspect]
     Active Substance: PHTHALYLSULFATHIAZOLE
     Route: 058
  245. PHTHALYLSULFATHIAZOLE [Suspect]
     Active Substance: PHTHALYLSULFATHIAZOLE
     Route: 065
  246. PHTHALYLSULFATHIAZOLE [Suspect]
     Active Substance: PHTHALYLSULFATHIAZOLE
     Route: 048
  247. PHTHALYLSULFATHIAZOLE [Suspect]
     Active Substance: PHTHALYLSULFATHIAZOLE
     Route: 065
  248. PREDNISONE [Suspect]
     Active Substance: PREDNISONE
     Indication: Rheumatoid arthritis
     Route: 065
  249. PREDNISONE [Suspect]
     Active Substance: PREDNISONE
     Route: 065
  250. PREDNISONE [Suspect]
     Active Substance: PREDNISONE
     Route: 048
  251. PREDNISONE [Suspect]
     Active Substance: PREDNISONE
     Route: 048
  252. PREDNISONE [Suspect]
     Active Substance: PREDNISONE
     Route: 048
  253. PREDNISONE [Suspect]
     Active Substance: PREDNISONE
     Route: 065
  254. PREDNISONE [Suspect]
     Active Substance: PREDNISONE
     Route: 065
  255. PREDNISONE [Suspect]
     Active Substance: PREDNISONE
     Route: 065
  256. PREDNISONE [Suspect]
     Active Substance: PREDNISONE
     Route: 065
  257. PREDNISONE [Suspect]
     Active Substance: PREDNISONE
     Route: 065
  258. PREDNISONE [Suspect]
     Active Substance: PREDNISONE
     Route: 065
  259. PREDNISONE [Suspect]
     Active Substance: PREDNISONE
     Route: 065
  260. PREDNISONE [Suspect]
     Active Substance: PREDNISONE
     Route: 065
  261. PSEUDOEPHEDRINE HYDROCHLORIDE [Suspect]
     Active Substance: PSEUDOEPHEDRINE HYDROCHLORIDE
     Indication: Rheumatoid arthritis
     Route: 065
  262. PSEUDOEPHEDRINE HYDROCHLORIDE [Suspect]
     Active Substance: PSEUDOEPHEDRINE HYDROCHLORIDE
     Route: 065
  263. PSEUDOEPHEDRINE HYDROCHLORIDE [Suspect]
     Active Substance: PSEUDOEPHEDRINE HYDROCHLORIDE
     Route: 065
  264. PSEUDOEPHEDRINE HYDROCHLORIDE [Suspect]
     Active Substance: PSEUDOEPHEDRINE HYDROCHLORIDE
     Route: 065
  265. RANITIDINE [Suspect]
     Active Substance: RANITIDINE
     Indication: Product used for unknown indication
     Route: 065
  266. XELJANZ [Suspect]
     Active Substance: TOFACITINIB CITRATE
     Indication: Rheumatoid arthritis
     Route: 048
  267. XELJANZ [Suspect]
     Active Substance: TOFACITINIB CITRATE
     Route: 065
  268. XELJANZ [Suspect]
     Active Substance: TOFACITINIB CITRATE
     Route: 065
  269. XELJANZ [Suspect]
     Active Substance: TOFACITINIB CITRATE
     Route: 065
  270. XELJANZ [Suspect]
     Active Substance: TOFACITINIB CITRATE
     Route: 065
  271. XELJANZ [Suspect]
     Active Substance: TOFACITINIB CITRATE
     Route: 065
  272. XELJANZ [Suspect]
     Active Substance: TOFACITINIB CITRATE
     Route: 065
  273. XELJANZ [Suspect]
     Active Substance: TOFACITINIB CITRATE
     Route: 065
  274. ACETAMINOPHEN\CODEINE PHOSPHATE [Suspect]
     Active Substance: ACETAMINOPHEN\CODEINE PHOSPHATE
     Indication: Product used for unknown indication
     Route: 065
  275. AZATHIOPRINE SODIUM [Suspect]
     Active Substance: AZATHIOPRINE SODIUM
     Indication: Product used for unknown indication
     Route: 065
  276. BERINERT [Suspect]
     Active Substance: HUMAN C1-ESTERASE INHIBITOR
     Indication: Product used for unknown indication
     Route: 065
  277. BOTULINUM TOXIN TYPE A [Suspect]
     Active Substance: BOTULINUM TOXIN TYPE A
     Indication: Product used for unknown indication
     Route: 065
  278. BUTRANS [Suspect]
     Active Substance: BUPRENORPHINE
     Indication: Product used for unknown indication
     Route: 065
  279. CALCIUM ASCORBATE [Suspect]
     Active Substance: CALCIUM ASCORBATE
     Indication: Product used for unknown indication
     Route: 065
  280. CELEBREX [Suspect]
     Active Substance: CELECOXIB
     Indication: Product used for unknown indication
     Route: 065
  281. CELEBREX [Suspect]
     Active Substance: CELECOXIB
     Route: 048
  282. CERTOLIZUMAB PEGOL [Suspect]
     Active Substance: CERTOLIZUMAB PEGOL
     Indication: Product used for unknown indication
     Route: 058
  283. CERTOLIZUMAB PEGOL [Suspect]
     Active Substance: CERTOLIZUMAB PEGOL
     Route: 065
  284. CERTOLIZUMAB PEGOL [Suspect]
     Active Substance: CERTOLIZUMAB PEGOL
     Route: 065
  285. CERTOLIZUMAB PEGOL [Suspect]
     Active Substance: CERTOLIZUMAB PEGOL
     Route: 065
  286. CERTOLIZUMAB PEGOL [Suspect]
     Active Substance: CERTOLIZUMAB PEGOL
     Route: 058
  287. CERTOLIZUMAB PEGOL [Suspect]
     Active Substance: CERTOLIZUMAB PEGOL
     Route: 058
  288. CETIRIZINE HYDROCHLORIDE [Suspect]
     Active Substance: CETIRIZINE HYDROCHLORIDE
     Indication: Product used for unknown indication
     Route: 065
  289. CETIRIZINE HYDROCHLORIDE [Suspect]
     Active Substance: CETIRIZINE HYDROCHLORIDE
     Route: 065
  290. CETIRIZINE HYDROCHLORIDE [Suspect]
     Active Substance: CETIRIZINE HYDROCHLORIDE
     Route: 065
  291. CETIRIZINE HYDROCHLORIDE [Suspect]
     Active Substance: CETIRIZINE HYDROCHLORIDE
     Route: 065
  292. CETIRIZINE HYDROCHLORIDE [Suspect]
     Active Substance: CETIRIZINE HYDROCHLORIDE
     Route: 065
  293. CETIRIZINE HYDROCHLORIDE [Suspect]
     Active Substance: CETIRIZINE HYDROCHLORIDE
     Route: 065
  294. CETIRIZINE HYDROCHLORIDE [Suspect]
     Active Substance: CETIRIZINE HYDROCHLORIDE
     Route: 065
  295. CETIRIZINE HYDROCHLORIDE [Suspect]
     Active Substance: CETIRIZINE HYDROCHLORIDE
     Route: 065
  296. CETIRIZINE HYDROCHLORIDE [Suspect]
     Active Substance: CETIRIZINE HYDROCHLORIDE
     Route: 065
  297. CETIRIZINE HYDROCHLORIDE [Suspect]
     Active Substance: CETIRIZINE HYDROCHLORIDE
     Route: 065
  298. CETIRIZINE HYDROCHLORIDE [Suspect]
     Active Substance: CETIRIZINE HYDROCHLORIDE
     Route: 065
  299. CETIRIZINE HYDROCHLORIDE [Suspect]
     Active Substance: CETIRIZINE HYDROCHLORIDE
     Route: 065
  300. CETIRIZINE HYDROCHLORIDE [Suspect]
     Active Substance: CETIRIZINE HYDROCHLORIDE
     Route: 065
  301. CETIRIZINE HYDROCHLORIDE [Suspect]
     Active Substance: CETIRIZINE HYDROCHLORIDE
     Route: 065
  302. CETIRIZINE HYDROCHLORIDE [Suspect]
     Active Substance: CETIRIZINE HYDROCHLORIDE
     Route: 065
  303. CETIRIZINE HYDROCHLORIDE [Suspect]
     Active Substance: CETIRIZINE HYDROCHLORIDE
     Route: 048
  304. CETIRIZINE HYDROCHLORIDE [Suspect]
     Active Substance: CETIRIZINE HYDROCHLORIDE
     Route: 048
  305. CETIRIZINE HYDROCHLORIDE [Suspect]
     Active Substance: CETIRIZINE HYDROCHLORIDE
     Route: 065
  306. CETIRIZINE HYDROCHLORIDE [Suspect]
     Active Substance: CETIRIZINE HYDROCHLORIDE
     Route: 065
  307. CETIRIZINE HYDROCHLORIDE [Suspect]
     Active Substance: CETIRIZINE HYDROCHLORIDE
     Route: 065
  308. CETIRIZINE HYDROCHLORIDE [Suspect]
     Active Substance: CETIRIZINE HYDROCHLORIDE
     Route: 065
  309. CETIRIZINE HYDROCHLORIDE [Suspect]
     Active Substance: CETIRIZINE HYDROCHLORIDE
     Route: 065
  310. CETIRIZINE HYDROCHLORIDE [Suspect]
     Active Substance: CETIRIZINE HYDROCHLORIDE
     Route: 065
  311. CETIRIZINE HYDROCHLORIDE [Suspect]
     Active Substance: CETIRIZINE HYDROCHLORIDE
     Route: 016
  312. CETIRIZINE HYDROCHLORIDE [Suspect]
     Active Substance: CETIRIZINE HYDROCHLORIDE
     Route: 065
  313. CETIRIZINE HYDROCHLORIDE [Suspect]
     Active Substance: CETIRIZINE HYDROCHLORIDE
     Route: 065
  314. CETIRIZINE HYDROCHLORIDE [Suspect]
     Active Substance: CETIRIZINE HYDROCHLORIDE
     Route: 065
  315. CETIRIZINE HYDROCHLORIDE [Suspect]
     Active Substance: CETIRIZINE HYDROCHLORIDE
     Route: 065
  316. CETIRIZINE HYDROCHLORIDE [Suspect]
     Active Substance: CETIRIZINE HYDROCHLORIDE
     Route: 065
  317. CALTRATE [Suspect]
     Active Substance: CALCIUM CARBONATE
     Indication: Product used for unknown indication
     Route: 065
  318. CALTRATE [Suspect]
     Active Substance: CALCIUM CARBONATE
     Route: 065
  319. DICLOFENAC DIETHYLAMINE [Suspect]
     Active Substance: DICLOFENAC DIETHYLAMINE
     Indication: Product used for unknown indication
     Route: 058
  320. DOMPERIDONE MALEATE [Suspect]
     Active Substance: DOMPERIDONE MALEATE
     Indication: Product used for unknown indication
     Route: 065
  321. HYDROXYCHLOROQUINE SULFATE [Suspect]
     Active Substance: HYDROXYCHLOROQUINE SULFATE
     Indication: Rheumatoid arthritis
     Route: 048
  322. HYDROXYCHLOROQUINE SULFATE [Suspect]
     Active Substance: HYDROXYCHLOROQUINE SULFATE
     Route: 048
  323. HYDROXYCHLOROQUINE SULFATE [Suspect]
     Active Substance: HYDROXYCHLOROQUINE SULFATE
     Route: 048
  324. HYDROXYCHLOROQUINE SULFATE [Suspect]
     Active Substance: HYDROXYCHLOROQUINE SULFATE
     Route: 065
  325. HYDROXYCHLOROQUINE SULFATE [Suspect]
     Active Substance: HYDROXYCHLOROQUINE SULFATE
     Route: 065
  326. HYDROXYCHLOROQUINE SULFATE [Suspect]
     Active Substance: HYDROXYCHLOROQUINE SULFATE
     Route: 065
  327. HYDROXYCHLOROQUINE SULFATE [Suspect]
     Active Substance: HYDROXYCHLOROQUINE SULFATE
     Route: 065
  328. HYDROXYCHLOROQUINE SULFATE [Suspect]
     Active Substance: HYDROXYCHLOROQUINE SULFATE
     Route: 065
  329. HYDROXYCHLOROQUINE SULFATE [Suspect]
     Active Substance: HYDROXYCHLOROQUINE SULFATE
     Route: 065
  330. HYDROXYCHLOROQUINE SULFATE [Suspect]
     Active Substance: HYDROXYCHLOROQUINE SULFATE
     Route: 065
  331. LAMICTAL [Suspect]
     Active Substance: LAMOTRIGINE
     Indication: Product used for unknown indication
     Route: 048
  332. LAMICTAL [Suspect]
     Active Substance: LAMOTRIGINE
     Route: 048
  333. LAMICTAL [Suspect]
     Active Substance: LAMOTRIGINE
     Route: 048
  334. LAMICTAL [Suspect]
     Active Substance: LAMOTRIGINE
     Route: 048
  335. LAMICTAL [Suspect]
     Active Substance: LAMOTRIGINE
     Route: 048
  336. LAMICTAL [Suspect]
     Active Substance: LAMOTRIGINE
     Route: 048
  337. METFORMIN HYDROCHLORIDE [Suspect]
     Active Substance: METFORMIN HYDROCHLORIDE
     Indication: Product used for unknown indication
     Route: 042
  338. METHYLPREDNISOLONE [Suspect]
     Active Substance: METHYLPREDNISOLONE
     Indication: Product used for unknown indication
     Route: 065
  339. METHYLPREDNISOLONE SODIUM SUCCINATE [Suspect]
     Active Substance: METHYLPREDNISOLONE SODIUM SUCCINATE
     Indication: Product used for unknown indication
     Route: 065
  340. MINOCYCLINE [Suspect]
     Active Substance: MINOCYCLINE HYDROCHLORIDE
     Indication: Product used for unknown indication
     Route: 065
  341. MINOCYCLINE HYDROCHLORIDE [Suspect]
     Active Substance: MINOCYCLINE HYDROCHLORIDE
     Indication: Product used for unknown indication
     Route: 030
  342. MINOCYCLINE HYDROCHLORIDE [Suspect]
     Active Substance: MINOCYCLINE HYDROCHLORIDE
     Route: 065
  343. MYRBETRIQ [Suspect]
     Active Substance: MIRABEGRON
     Indication: Product used for unknown indication
     Route: 065
  344. MYRBETRIQ [Suspect]
     Active Substance: MIRABEGRON
     Route: 065
  345. MYRBETRIQ [Suspect]
     Active Substance: MIRABEGRON
     Route: 065
  346. CETIRIZINE HYDROCHLORIDE\PSEUDOEPHEDRINE HYDROCHLORIDE [Suspect]
     Active Substance: CETIRIZINE HYDROCHLORIDE\PSEUDOEPHEDRINE HYDROCHLORIDE
     Indication: Rheumatoid arthritis
     Route: 065
  347. CETIRIZINE HYDROCHLORIDE\PSEUDOEPHEDRINE HYDROCHLORIDE [Suspect]
     Active Substance: CETIRIZINE HYDROCHLORIDE\PSEUDOEPHEDRINE HYDROCHLORIDE
     Route: 065
  348. CETIRIZINE HYDROCHLORIDE\PSEUDOEPHEDRINE HYDROCHLORIDE [Suspect]
     Active Substance: CETIRIZINE HYDROCHLORIDE\PSEUDOEPHEDRINE HYDROCHLORIDE
     Route: 065
  349. CETIRIZINE HYDROCHLORIDE\PSEUDOEPHEDRINE HYDROCHLORIDE [Suspect]
     Active Substance: CETIRIZINE HYDROCHLORIDE\PSEUDOEPHEDRINE HYDROCHLORIDE
     Route: 042
  350. CETIRIZINE HYDROCHLORIDE\PSEUDOEPHEDRINE HYDROCHLORIDE [Suspect]
     Active Substance: CETIRIZINE HYDROCHLORIDE\PSEUDOEPHEDRINE HYDROCHLORIDE
     Route: 065
  351. CETIRIZINE HYDROCHLORIDE\PSEUDOEPHEDRINE HYDROCHLORIDE [Suspect]
     Active Substance: CETIRIZINE HYDROCHLORIDE\PSEUDOEPHEDRINE HYDROCHLORIDE
     Route: 065
  352. CETIRIZINE HYDROCHLORIDE\PSEUDOEPHEDRINE HYDROCHLORIDE [Suspect]
     Active Substance: CETIRIZINE HYDROCHLORIDE\PSEUDOEPHEDRINE HYDROCHLORIDE
     Route: 065
  353. CETIRIZINE HYDROCHLORIDE\PSEUDOEPHEDRINE HYDROCHLORIDE [Suspect]
     Active Substance: CETIRIZINE HYDROCHLORIDE\PSEUDOEPHEDRINE HYDROCHLORIDE
     Route: 065
  354. REMICADE [Suspect]
     Active Substance: INFLIXIMAB
     Indication: Rheumatoid arthritis
     Route: 042
  355. REMICADE [Suspect]
     Active Substance: INFLIXIMAB
     Route: 058
  356. REMICADE [Suspect]
     Active Substance: INFLIXIMAB
     Route: 042
  357. REMICADE [Suspect]
     Active Substance: INFLIXIMAB
     Route: 042
  358. REMICADE [Suspect]
     Active Substance: INFLIXIMAB
     Route: 042
  359. REMICADE [Suspect]
     Active Substance: INFLIXIMAB
     Route: 065
  360. REMICADE [Suspect]
     Active Substance: INFLIXIMAB
     Route: 042
  361. REMICADE [Suspect]
     Active Substance: INFLIXIMAB
     Route: 058
  362. SULFASALAZINE [Suspect]
     Active Substance: SULFASALAZINE
     Indication: Rheumatoid arthritis
     Route: 065
  363. SIMPONI [Suspect]
     Active Substance: GOLIMUMAB
     Indication: Product used for unknown indication
     Route: 058
  364. SIMPONI [Suspect]
     Active Substance: GOLIMUMAB
     Route: 058
  365. SIMPONI [Suspect]
     Active Substance: GOLIMUMAB
     Route: 065
  366. SIMPONI [Suspect]
     Active Substance: GOLIMUMAB
     Route: 065
  367. SIMPONI [Suspect]
     Active Substance: GOLIMUMAB
     Route: 065
  368. SIRUKUMAB [Suspect]
     Active Substance: SIRUKUMAB
     Indication: Product used for unknown indication
     Route: 065
  369. GOLD SODIUM THIOMALATE [Suspect]
     Active Substance: GOLD SODIUM THIOMALATE
     Indication: Product used for unknown indication
     Route: 048
  370. GOLD SODIUM THIOMALATE [Suspect]
     Active Substance: GOLD SODIUM THIOMALATE
     Route: 065
  371. GOLD SODIUM THIOMALATE [Suspect]
     Active Substance: GOLD SODIUM THIOMALATE
     Route: 065
  372. STELARA [Suspect]
     Active Substance: USTEKINUMAB
     Indication: Rheumatoid arthritis
     Route: 058
  373. STELARA [Suspect]
     Active Substance: USTEKINUMAB
     Route: 065
  374. SULFASALAZINE [Suspect]
     Active Substance: SULFASALAZINE
     Indication: Rheumatoid arthritis
     Route: 065
  375. SULFASALAZINE [Suspect]
     Active Substance: SULFASALAZINE
     Route: 065
  376. SULFASALAZINE [Suspect]
     Active Substance: SULFASALAZINE
     Route: 065
  377. SULFASALAZINE [Suspect]
     Active Substance: SULFASALAZINE
     Route: 065
  378. SULFASALAZINE [Suspect]
     Active Substance: SULFASALAZINE
     Route: 065
  379. SULFASALAZINE [Suspect]
     Active Substance: SULFASALAZINE
     Route: 065
  380. SULFASALAZINE [Suspect]
     Active Substance: SULFASALAZINE
     Route: 058
  381. SULFASALAZINE [Suspect]
     Active Substance: SULFASALAZINE
     Route: 048
  382. SULFASALAZINE [Suspect]
     Active Substance: SULFASALAZINE
     Route: 065
  383. SULFASALAZINE [Suspect]
     Active Substance: SULFASALAZINE
     Route: 065
  384. SULFASALAZINE [Suspect]
     Active Substance: SULFASALAZINE
     Route: 065
  385. SULFASALAZINE [Suspect]
     Active Substance: SULFASALAZINE
     Route: 065
  386. SULFASALAZINE [Suspect]
     Active Substance: SULFASALAZINE
     Route: 058
  387. SULFASALAZINE [Suspect]
     Active Substance: SULFASALAZINE
     Route: 058
  388. SULFASALAZINE [Suspect]
     Active Substance: SULFASALAZINE
     Route: 016
  389. SULFASALAZINE [Suspect]
     Active Substance: SULFASALAZINE
     Route: 058
  390. SULFASALAZINE [Suspect]
     Active Substance: SULFASALAZINE
     Route: 048
  391. SULFASALAZINE [Suspect]
     Active Substance: SULFASALAZINE
     Route: 048
  392. SULFASALAZINE [Suspect]
     Active Substance: SULFASALAZINE
     Route: 048
  393. SULFASALAZINE [Suspect]
     Active Substance: SULFASALAZINE
     Route: 048
  394. SULFASALAZINE [Suspect]
     Active Substance: SULFASALAZINE
     Route: 058
  395. SULFASALAZINE [Suspect]
     Active Substance: SULFASALAZINE
     Route: 065
  396. SULFASALAZINE [Suspect]
     Active Substance: SULFASALAZINE
     Route: 058
  397. TOCILIZUMAB [Suspect]
     Active Substance: TOCILIZUMAB
     Indication: Rheumatoid arthritis
     Route: 065
  398. TOCILIZUMAB [Suspect]
     Active Substance: TOCILIZUMAB
     Route: 065
  399. TOCILIZUMAB [Suspect]
     Active Substance: TOCILIZUMAB
     Route: 042
  400. TOCILIZUMAB [Suspect]
     Active Substance: TOCILIZUMAB
     Route: 065
  401. TOCILIZUMAB [Suspect]
     Active Substance: TOCILIZUMAB
     Route: 065
  402. TOCILIZUMAB [Suspect]
     Active Substance: TOCILIZUMAB
     Route: 058
  403. TOCILIZUMAB [Suspect]
     Active Substance: TOCILIZUMAB
     Route: 058
  404. TOCILIZUMAB [Suspect]
     Active Substance: TOCILIZUMAB
     Route: 065
  405. TOFACITINIB [Suspect]
     Active Substance: TOFACITINIB
     Indication: Rheumatoid arthritis
     Route: 065
  406. TOFACITINIB CITRATE [Suspect]
     Active Substance: TOFACITINIB CITRATE
     Indication: Rheumatoid arthritis
     Route: 048
  407. TOFACITINIB CITRATE [Suspect]
     Active Substance: TOFACITINIB CITRATE
     Route: 065
  408. USTEKINUMAB [Suspect]
     Active Substance: USTEKINUMAB
     Indication: Product used for unknown indication
     Route: 065
  409. USTEKINUMAB [Suspect]
     Active Substance: USTEKINUMAB
     Route: 058
  410. USTEKINUMAB [Suspect]
     Active Substance: USTEKINUMAB
     Route: 058
  411. ACETAMINOPHEN\CODEINE PHOSPHATE [Suspect]
     Active Substance: ACETAMINOPHEN\CODEINE PHOSPHATE
     Indication: Product used for unknown indication
     Route: 065
  412. DICLOFENAC DIETHYLAMINE [Suspect]
     Active Substance: DICLOFENAC DIETHYLAMINE
     Indication: Product used for unknown indication
     Route: 058
  413. DICLOFENAC DIETHYLAMINE [Suspect]
     Active Substance: DICLOFENAC DIETHYLAMINE
     Route: 065
  414. DICLOFENAC DIETHYLAMINE [Suspect]
     Active Substance: DICLOFENAC DIETHYLAMINE
     Route: 065
  415. DICLOFENAC DIETHYLAMINE [Suspect]
     Active Substance: DICLOFENAC DIETHYLAMINE
     Route: 065
  416. CETIRIZINE HYDROCHLORIDE [Suspect]
     Active Substance: CETIRIZINE HYDROCHLORIDE
     Indication: Product used for unknown indication
     Route: 065
  417. CETIRIZINE HYDROCHLORIDE [Suspect]
     Active Substance: CETIRIZINE HYDROCHLORIDE
     Route: 065
  418. CETIRIZINE HYDROCHLORIDE [Suspect]
     Active Substance: CETIRIZINE HYDROCHLORIDE
     Route: 065
  419. CETIRIZINE HYDROCHLORIDE [Suspect]
     Active Substance: CETIRIZINE HYDROCHLORIDE
     Route: 065
  420. CETIRIZINE HYDROCHLORIDE [Suspect]
     Active Substance: CETIRIZINE HYDROCHLORIDE
     Route: 065
  421. CETIRIZINE HYDROCHLORIDE [Suspect]
     Active Substance: CETIRIZINE HYDROCHLORIDE
     Route: 065
  422. CETIRIZINE HYDROCHLORIDE [Suspect]
     Active Substance: CETIRIZINE HYDROCHLORIDE
     Route: 065
  423. CETIRIZINE HYDROCHLORIDE [Suspect]
     Active Substance: CETIRIZINE HYDROCHLORIDE
     Route: 065
  424. CETIRIZINE HYDROCHLORIDE [Suspect]
     Active Substance: CETIRIZINE HYDROCHLORIDE
     Route: 065
  425. CETIRIZINE HYDROCHLORIDE [Suspect]
     Active Substance: CETIRIZINE HYDROCHLORIDE
     Route: 065
  426. CETIRIZINE HYDROCHLORIDE [Suspect]
     Active Substance: CETIRIZINE HYDROCHLORIDE
     Route: 065
  427. CETIRIZINE HYDROCHLORIDE [Suspect]
     Active Substance: CETIRIZINE HYDROCHLORIDE
     Route: 048
  428. CETIRIZINE HYDROCHLORIDE [Suspect]
     Active Substance: CETIRIZINE HYDROCHLORIDE
     Route: 048
  429. CETIRIZINE HYDROCHLORIDE [Suspect]
     Active Substance: CETIRIZINE HYDROCHLORIDE
     Route: 048
  430. CETIRIZINE HYDROCHLORIDE [Suspect]
     Active Substance: CETIRIZINE HYDROCHLORIDE
     Route: 065
  431. CETIRIZINE HYDROCHLORIDE [Suspect]
     Active Substance: CETIRIZINE HYDROCHLORIDE
     Route: 048
  432. CETIRIZINE HYDROCHLORIDE [Suspect]
     Active Substance: CETIRIZINE HYDROCHLORIDE
     Route: 048
  433. CETIRIZINE HYDROCHLORIDE [Suspect]
     Active Substance: CETIRIZINE HYDROCHLORIDE
     Route: 065
  434. CETIRIZINE HYDROCHLORIDE [Suspect]
     Active Substance: CETIRIZINE HYDROCHLORIDE
     Route: 065
  435. CETIRIZINE HYDROCHLORIDE [Suspect]
     Active Substance: CETIRIZINE HYDROCHLORIDE
     Route: 065
  436. CETIRIZINE HYDROCHLORIDE [Suspect]
     Active Substance: CETIRIZINE HYDROCHLORIDE
     Route: 065
  437. CETIRIZINE HYDROCHLORIDE [Suspect]
     Active Substance: CETIRIZINE HYDROCHLORIDE
     Route: 065
  438. CETIRIZINE HYDROCHLORIDE [Suspect]
     Active Substance: CETIRIZINE HYDROCHLORIDE
     Route: 065
  439. CETIRIZINE HYDROCHLORIDE [Suspect]
     Active Substance: CETIRIZINE HYDROCHLORIDE
     Route: 016
  440. CETIRIZINE HYDROCHLORIDE [Suspect]
     Active Substance: CETIRIZINE HYDROCHLORIDE
     Route: 065
  441. CETIRIZINE HYDROCHLORIDE [Suspect]
     Active Substance: CETIRIZINE HYDROCHLORIDE
     Route: 065
  442. CETIRIZINE HYDROCHLORIDE [Suspect]
     Active Substance: CETIRIZINE HYDROCHLORIDE
     Route: 065
  443. CETIRIZINE HYDROCHLORIDE [Suspect]
     Active Substance: CETIRIZINE HYDROCHLORIDE
     Route: 065
  444. CETIRIZINE HYDROCHLORIDE [Suspect]
     Active Substance: CETIRIZINE HYDROCHLORIDE
     Route: 065
  445. DICLOFENAC DIETHYLAMINE [Suspect]
     Active Substance: DICLOFENAC DIETHYLAMINE
     Indication: Product used for unknown indication
     Route: 065
  446. ALENDRONATE SODIUM\CHOLECALCIFEROL [Suspect]
     Active Substance: ALENDRONATE SODIUM\CHOLECALCIFEROL
     Indication: Product used for unknown indication
     Route: 065
  447. DEXTROMETHORPHAN HYDROBROMIDE\PSEUDOEPHEDRINE HYDROCHLORIDE\TRIPROLIDI [Suspect]
     Active Substance: DEXTROMETHORPHAN HYDROBROMIDE\PSEUDOEPHEDRINE HYDROCHLORIDE\TRIPROLIDINE HYDROCHLORIDE
     Indication: Rheumatoid arthritis
     Route: 065
  448. DEXTROMETHORPHAN HYDROBROMIDE\PSEUDOEPHEDRINE HYDROCHLORIDE\TRIPROLIDI [Suspect]
     Active Substance: DEXTROMETHORPHAN HYDROBROMIDE\PSEUDOEPHEDRINE HYDROCHLORIDE\TRIPROLIDINE HYDROCHLORIDE
     Route: 065
  449. DEXTROMETHORPHAN HYDROBROMIDE\PSEUDOEPHEDRINE HYDROCHLORIDE\TRIPROLIDI [Suspect]
     Active Substance: DEXTROMETHORPHAN HYDROBROMIDE\PSEUDOEPHEDRINE HYDROCHLORIDE\TRIPROLIDINE HYDROCHLORIDE
     Route: 065
  450. DEXTROMETHORPHAN HYDROBROMIDE\PSEUDOEPHEDRINE HYDROCHLORIDE\TRIPROLIDI [Suspect]
     Active Substance: DEXTROMETHORPHAN HYDROBROMIDE\PSEUDOEPHEDRINE HYDROCHLORIDE\TRIPROLIDINE HYDROCHLORIDE
     Route: 065
  451. HYDROCORTISONE [Suspect]
     Active Substance: HYDROCORTISONE\HYDROCORTISONE ACETATE
     Indication: Product used for unknown indication
     Route: 065

REACTIONS (123)
  - Fall [Fatal]
  - Lung disorder [Fatal]
  - Drug intolerance [Fatal]
  - Urticaria [Fatal]
  - Off label use [Fatal]
  - Vomiting [Fatal]
  - Anti-cyclic citrullinated peptide antibody positive [Fatal]
  - Nasopharyngitis [Fatal]
  - Musculoskeletal stiffness [Fatal]
  - Dizziness [Fatal]
  - Dyspepsia [Fatal]
  - Rash [Fatal]
  - Fatigue [Fatal]
  - Rheumatic fever [Fatal]
  - Hypersensitivity [Fatal]
  - Dyspnoea [Fatal]
  - Alopecia [Fatal]
  - Paraesthesia [Fatal]
  - Nail disorder [Fatal]
  - Weight increased [Fatal]
  - Condition aggravated [Fatal]
  - Back injury [Fatal]
  - Product label confusion [Fatal]
  - Injury [Fatal]
  - Blood cholesterol increased [Fatal]
  - Diarrhoea [Fatal]
  - Decreased appetite [Fatal]
  - Muscle spasms [Fatal]
  - Mobility decreased [Fatal]
  - Neck pain [Fatal]
  - Headache [Fatal]
  - Swelling [Fatal]
  - Hypoaesthesia [Fatal]
  - Peripheral venous disease [Fatal]
  - Abdominal discomfort [Fatal]
  - Intentional product use issue [Fatal]
  - Folliculitis [Fatal]
  - Therapeutic product effect decreased [Fatal]
  - Glossodynia [Fatal]
  - Breast cancer stage III [Fatal]
  - Adverse reaction [Fatal]
  - Osteoarthritis [Fatal]
  - Drug-induced liver injury [Fatal]
  - Wound [Fatal]
  - Inflammation [Fatal]
  - Pain [Fatal]
  - Hand deformity [Fatal]
  - Liver injury [Fatal]
  - Live birth [Fatal]
  - Pain in extremity [Fatal]
  - Malaise [Fatal]
  - Asthenia [Fatal]
  - Arthralgia [Fatal]
  - Facet joint syndrome [Fatal]
  - Insomnia [Fatal]
  - Taste disorder [Fatal]
  - Gastrointestinal disorder [Fatal]
  - Muscular weakness [Fatal]
  - Coeliac disease [Fatal]
  - Treatment failure [Fatal]
  - Confusional state [Fatal]
  - Infusion related reaction [Fatal]
  - Joint swelling [Fatal]
  - Liver function test increased [Fatal]
  - Hypertension [Fatal]
  - Lip dry [Fatal]
  - Irritable bowel syndrome [Fatal]
  - Nausea [Fatal]
  - Bursitis [Fatal]
  - Product use in unapproved indication [Fatal]
  - Maternal exposure during pregnancy [Fatal]
  - Pericarditis [Fatal]
  - Grip strength decreased [Fatal]
  - Systemic lupus erythematosus [Fatal]
  - Gastrooesophageal reflux disease [Fatal]
  - Blister [Fatal]
  - Abdominal distension [Fatal]
  - Migraine [Fatal]
  - Exposure during pregnancy [Fatal]
  - Night sweats [Fatal]
  - C-reactive protein increased [Fatal]
  - Memory impairment [Fatal]
  - General physical health deterioration [Fatal]
  - Ill-defined disorder [Fatal]
  - Hepatic enzyme increased [Fatal]
  - Pemphigus [Fatal]
  - Arthropathy [Fatal]
  - Synovitis [Fatal]
  - Onychomycosis [Fatal]
  - Drug ineffective [Fatal]
  - C-reactive protein abnormal [Fatal]
  - Onychomadesis [Fatal]
  - Joint range of motion decreased [Fatal]
  - Fibromyalgia [Fatal]
  - Finger deformity [Fatal]
  - Pneumonia [Fatal]
  - Wheezing [Fatal]
  - Muscle injury [Fatal]
  - Stomatitis [Fatal]
  - Peripheral swelling [Fatal]
  - Wound infection [Fatal]
  - Hepatitis [Fatal]
  - Helicobacter infection [Fatal]
  - Dry mouth [Fatal]
  - Blepharospasm [Fatal]
  - Injection site reaction [Fatal]
  - Hypercholesterolaemia [Fatal]
  - Duodenal ulcer perforation [Fatal]
  - Product quality issue [Fatal]
  - Sleep disorder [Fatal]
  - Rheumatoid arthritis [Fatal]
  - Gait inability [Fatal]
  - Contraindicated product administered [Fatal]
  - Depression [Fatal]
  - Impaired healing [Fatal]
  - Obesity [Fatal]
  - Type 2 diabetes mellitus [Fatal]
  - Musculoskeletal pain [Fatal]
  - Psoriatic arthropathy [Fatal]
  - Epilepsy [Fatal]
  - Lower respiratory tract infection [Fatal]
  - Drug hypersensitivity [Fatal]
  - Abdominal pain upper [Fatal]
